FAERS Safety Report 7475473-0 (Version None)
Quarter: 2011Q2

REPORT INFORMATION
  Report Type: 
  Country: None (occurrence: None)
  Receive Date: 20110512
  Receipt Date: 20110429
  Transmission Date: 20111010
  Serious: Yes (Other)
  Sender: FDA-Public Use
  Company Number: PHHY2011AU38359

PATIENT
  Sex: Male

DRUGS (4)
  1. FLUVOXAMINE [Concomitant]
     Dosage: 100 MG, UNK
  2. OMEPRAZOLE [Concomitant]
     Dosage: 20 MG, BID
  3. CLOZARIL [Suspect]
     Dosage: 500 MG
     Route: 048
     Dates: start: 20020626, end: 20101208
  4. PERINDOPRIL [Concomitant]
     Dosage: 05 MG, UNK

REACTIONS (3)
  - CIRCULATORY COLLAPSE [None]
  - APATHY [None]
  - SEDATION [None]
